FAERS Safety Report 19459864 (Version 1)
Quarter: 2021Q2

REPORT INFORMATION
  Report Type: Spontaneous
  Country: US (occurrence: US)
  Receive Date: 20210625
  Receipt Date: 20210625
  Transmission Date: 20210717
  Serious: No
  Sender: FDA-Public Use
  Company Number: US-BEIGENE USA INC-BGN-2021-002065

PATIENT

DRUGS (9)
  1. BLOOD PRESSURE MEDICATION [Concomitant]
     Active Substance: UNSPECIFIED INGREDIENT
     Indication: CEREBROVASCULAR ACCIDENT
  2. MESNA. [Suspect]
     Active Substance: MESNA
  3. RITUXAN [Suspect]
     Active Substance: RITUXIMAB
     Indication: MANTLE CELL LYMPHOMA
     Dosage: EVERY 28 DAYS
  4. BRUKINSA [Suspect]
     Active Substance: ZANUBRUTINIB
     Indication: MANTLE CELL LYMPHOMA
     Dosage: 2 CAPSULES BY MOUTH IN THE MORNING, AND 2 CAPSULES BY MOUTH 12 HOURS LATER
     Route: 048
     Dates: start: 20210405
  5. BLOOD PRESSURE MEDICATION [Concomitant]
     Active Substance: UNSPECIFIED INGREDIENT
     Indication: CEREBROVASCULAR ACCIDENT
  6. CYCLOPHOSPHAMIDE. [Suspect]
     Active Substance: CYCLOPHOSPHAMIDE
     Indication: MANTLE CELL LYMPHOMA
     Dosage: 6 BAGS OF CHEMOTHERAPY
     Dates: start: 20210319, end: 20210324
  7. ELIQUIS [Concomitant]
     Active Substance: APIXABAN
     Indication: ATRIAL FIBRILLATION
  8. FLECAINIDE [Concomitant]
     Active Substance: FLECAINIDE
     Indication: CARDIAC DISORDER
  9. CHOLESTEROL MEDICATION [Concomitant]
     Active Substance: UNSPECIFIED INGREDIENT
     Indication: CEREBROVASCULAR ACCIDENT

REACTIONS (1)
  - Hair disorder [Unknown]
